FAERS Safety Report 20628506 (Version 1)
Quarter: 2022Q1

REPORT INFORMATION
  Report Type: Spontaneous
  Country: IN (occurrence: IN)
  Receive Date: 20220323
  Receipt Date: 20220323
  Transmission Date: 20220423
  Serious: Yes (Death)
  Sender: FDA-Public Use
  Company Number: IN-PFIZER INC-2020281422

PATIENT
  Age: 60 Year
  Sex: Female

DRUGS (1)
  1. DACOMITINIB [Suspect]
     Active Substance: DACOMITINIB
     Indication: Non-small cell lung cancer
     Dosage: 30 MG, 1X/DAY
     Route: 048
     Dates: start: 20200722

REACTIONS (1)
  - Death [Fatal]

NARRATIVE: CASE EVENT DATE: 20210714
